FAERS Safety Report 9030917 (Version 2)
Quarter: 2013Q2

REPORT INFORMATION
  Report Type: Report from Study
  Country: IT (occurrence: IT)
  Receive Date: 20130123
  Receipt Date: 20130621
  Transmission Date: 20140414
  Serious: Yes (Hospitalization)
  Sender: FDA-Public Use
  Company Number: IT-BAXTER-2013BAX002506

PATIENT
  Age: 70 Year
  Sex: Male
  Weight: 69 kg

DRUGS (41)
  1. ENDOXAN BAXTER [Suspect]
     Indication: DIFFUSE LARGE B-CELL LYMPHOMA
     Route: 065
     Dates: start: 20130110
  2. ENDOXAN BAXTER [Suspect]
     Route: 065
     Dates: start: 20130130
  3. ENDOXAN BAXTER [Suspect]
     Route: 065
     Dates: start: 20130220
  4. ENDOXAN BAXTER [Suspect]
     Route: 065
     Dates: start: 20130320
  5. ENDOXAN BAXTER [Suspect]
     Route: 065
     Dates: start: 20130410
  6. ENDOXAN BAXTER [Suspect]
     Route: 065
     Dates: start: 20130509
  7. RITUXIMAB [Suspect]
     Indication: DIFFUSE LARGE B-CELL LYMPHOMA
     Route: 042
     Dates: start: 20130109
  8. DOXORUBICIN [Suspect]
     Indication: DIFFUSE LARGE B-CELL LYMPHOMA
     Route: 065
     Dates: start: 20130110
  9. DOXORUBICIN [Suspect]
     Route: 065
     Dates: start: 20130130
  10. DOXORUBICIN [Suspect]
     Route: 065
     Dates: start: 20130220
  11. DOXORUBICIN [Suspect]
     Route: 065
     Dates: start: 20130320
  12. DOXORUBICIN [Suspect]
     Route: 065
     Dates: start: 20130410
  13. DOXORUBICIN [Suspect]
     Route: 065
     Dates: start: 20130509
  14. PREDNISONE [Suspect]
     Indication: DIFFUSE LARGE B-CELL LYMPHOMA
     Route: 065
     Dates: start: 20130110
  15. PREDNISONE [Suspect]
     Route: 065
     Dates: start: 20130130
  16. PREDNISONE [Suspect]
     Route: 065
     Dates: start: 20130220
  17. PREDNISONE [Suspect]
     Route: 065
     Dates: start: 20130320
  18. PREDNISONE [Suspect]
     Route: 065
     Dates: start: 20130410
  19. PREDNISONE [Suspect]
     Route: 065
     Dates: start: 20130509
  20. VINCRISTINE [Suspect]
     Indication: DIFFUSE LARGE B-CELL LYMPHOMA
     Route: 065
     Dates: start: 20130110
  21. VINCRISTINE [Suspect]
     Route: 065
     Dates: start: 20130130
  22. VINCRISTINE [Suspect]
     Route: 065
     Dates: start: 20130220
  23. VINCRISTINE [Suspect]
     Route: 065
     Dates: start: 20130320
  24. VINCRISTINE [Suspect]
     Route: 065
     Dates: start: 20130410
  25. VINCRISTINE [Suspect]
     Route: 065
     Dates: start: 20130509
  26. ONDANSETRON [Concomitant]
     Indication: PROPHYLAXIS
     Route: 048
  27. CHLORHEXIDINE GLUCONATE [Concomitant]
     Indication: PROPHYLAXIS
     Route: 048
     Dates: start: 20130108
  28. NYSTATIN [Concomitant]
     Indication: PROPHYLAXIS
     Route: 048
     Dates: start: 20130108
  29. LANSOPRAZOLE [Concomitant]
     Indication: PROPHYLAXIS AGAINST GASTROINTESTINAL ULCER
     Route: 048
     Dates: start: 20130108
  30. ALLOPURINOL [Concomitant]
     Indication: HYPERURICAEMIA
     Route: 048
     Dates: start: 20130108
  31. TAMSULOSIN HYDROCHLORIDE [Concomitant]
     Indication: PRODUCT USED FOR UNKNOWN INDICATION
     Route: 048
  32. LORAZEPAM [Concomitant]
     Indication: PROPHYLAXIS
     Route: 048
  33. FONDAPARINUX SODIUM [Concomitant]
     Indication: PRODUCT USED FOR UNKNOWN INDICATION
     Route: 058
     Dates: start: 20121226
  34. LACTULOSE [Concomitant]
     Indication: PRODUCT USED FOR UNKNOWN INDICATION
     Route: 048
  35. SODIUM CHLORIDE [Concomitant]
     Indication: HYPOKALAEMIA
     Dosage: 500 CUBIC CM
     Route: 065
  36. METHOTREXATE [Concomitant]
     Indication: PRODUCT USED FOR UNKNOWN INDICATION
     Route: 065
     Dates: start: 20130227, end: 20130515
  37. LEVOFLOXACIN [Concomitant]
     Indication: PRODUCT USED FOR UNKNOWN INDICATION
     Route: 048
     Dates: start: 20130302, end: 20130305
  38. CEFTRIAXONE SODIUM [Concomitant]
     Indication: PRODUCT USED FOR UNKNOWN INDICATION
     Route: 065
     Dates: start: 20130315, end: 20130319
  39. LEVOXACIN [Concomitant]
     Indication: PRODUCT USED FOR UNKNOWN INDICATION
     Route: 048
  40. LEVOXACIN [Concomitant]
     Route: 065
     Dates: start: 20130227, end: 20130515
  41. TACHIDOL [Concomitant]
     Indication: PRODUCT USED FOR UNKNOWN INDICATION
     Dosage: 1 PACKET/ PACK AS NEEDED
     Route: 048
     Dates: start: 20130108

REACTIONS (1)
  - Hypotension [Recovered/Resolved]
